FAERS Safety Report 9618910 (Version 1)
Quarter: 2013Q4

REPORT INFORMATION
  Report Type: Spontaneous
  Country: PT (occurrence: PT)
  Receive Date: 20131014
  Receipt Date: 20131014
  Transmission Date: 20140711
  Serious: Yes (Other)
  Sender: FDA-Public Use
  Company Number: PT-VERTEX PHARMACEUTICALS INC-2013-010345

PATIENT
  Sex: 0

DRUGS (4)
  1. INCIVO [Suspect]
     Indication: HEPATITIS C
     Route: 048
  2. RIBAVIRIN [Concomitant]
  3. PEG INTERFERON [Concomitant]
  4. EFAVIRENZ [Concomitant]

REACTIONS (9)
  - Neutropenia [Unknown]
  - Jaundice [Unknown]
  - Anaemia [Unknown]
  - Rash [Unknown]
  - Off label use [Unknown]
  - Asthenia [Unknown]
  - Proctalgia [Unknown]
  - Anal pruritus [Unknown]
  - Drug ineffective [Unknown]
